FAERS Safety Report 8590376-6 (Version None)
Quarter: 2012Q3

REPORT INFORMATION
  Report Type: 
  Country: None (occurrence: None)
  Receive Date: 20120813
  Receipt Date: 20120810
  Transmission Date: 20120928
  Serious: Yes (Disabling)
  Sender: FDA-Public Use
  Company Number: CA-ROCHE-1084269

PATIENT
  Sex: Female

DRUGS (24)
  1. COLACE [Concomitant]
     Indication: CONSTIPATION
  2. POLYETHYLENE GLYCOL [Concomitant]
     Indication: CONSTIPATION
     Dates: start: 20120608
  3. PREDNISOLONE [Suspect]
     Indication: DIFFUSE LARGE B-CELL LYMPHOMA
     Dosage: DOSE OF LAST DRUG TAKEN:100MG, DATE OF RECENT DOSE TAKEN PRIOR TO ONSET OF AE:17/JUN/2012
     Route: 048
     Dates: start: 20120410
  4. TRAMADOL HYDROCHLORIDE AND ACETAMINOPHEN [Concomitant]
     Indication: ABDOMINAL PAIN
  5. SENOKOT [Concomitant]
     Indication: CONSTIPATION
  6. VALACYCLOVIR HYDROCHLORIDE [Concomitant]
     Dates: start: 20120604
  7. CODEINE [Concomitant]
     Indication: ORAL PAIN
     Dates: start: 20120407
  8. BENZYDAMINE [Concomitant]
     Indication: MUCOSAL INFLAMMATION
     Dates: start: 20120427
  9. VINCRISTINE [Suspect]
     Indication: DIFFUSE LARGE B-CELL LYMPHOMA
     Dosage: ROUTE:INTRAVENOUS PUSH, DOSE OF LAST DRUG TAKEN:2MG, DATE OF LAST DOSE TAKEN PRIOR TO ONSET OF AE:13
     Route: 042
     Dates: start: 20120410
  10. NAPROXEN [Concomitant]
     Indication: BACK PAIN
  11. MORPHINE [Concomitant]
     Dates: start: 20120601
  12. PREPARATION H CREAM [Concomitant]
     Indication: HAEMORRHOIDS
     Dates: start: 20120517
  13. LIDOCAINE [Concomitant]
     Dates: start: 20120608
  14. DOXORUBICIN HYDROCHLORIDE [Suspect]
     Indication: DIFFUSE LARGE B-CELL LYMPHOMA
     Dosage: DOSE OF LAST DRUG TAKEN:91MG, DATE OF LAST DOSE TAKEN PRIOR TO ONSET OF AE:13/JUN/2012
     Route: 042
     Dates: start: 20120410
  15. VALACYCLOVIR HYDROCHLORIDE [Concomitant]
     Indication: PROPHYLAXIS
     Dates: start: 20120307
  16. RANITIDINE [Concomitant]
     Indication: PREMEDICATION
     Dates: start: 20120410
  17. MABTHERA [Suspect]
     Indication: DIFFUSE LARGE B-CELL LYMPHOMA
     Dosage: VOLUME OF LAST DRUG TAKEN:343.5ML, DOSE CONCENTRATION OF  LAST DRUG TAKEN:1.99MG/ML, DATE OF LAST DO
     Route: 042
     Dates: start: 20120410
  18. YAZ [Concomitant]
     Indication: CONTRACEPTION
  19. MORPHINE [Concomitant]
     Indication: ABDOMINAL DISCOMFORT
     Dates: start: 20120320
  20. PANTOPRAZOLE [Concomitant]
     Indication: DYSPEPSIA
  21. CYCLOPHOSPHAMIDE [Suspect]
     Indication: DIFFUSE LARGE B-CELL LYMPHOMA
     Dosage: DOSE OF LAST DRUG TAKEN:1370MG, DATE OF LAST DOSE TAKEN PRIOR TO ONSET OF AE:13/JUN/2012
     Route: 042
     Dates: start: 20120410
  22. ACETAMINOPHEN [Concomitant]
     Indication: PREMEDICATION
     Dates: start: 20120410
  23. DIPHENHYDRAMINE HYDROCHLORIDE [Concomitant]
     Indication: PREMEDICATION
     Dates: start: 20100410
  24. SUPPOSITORY (UNK INGREDIENTS) [Concomitant]
     Indication: HAEMORRHOIDS
     Dates: start: 20120517

REACTIONS (1)
  - ORAL HERPES [None]
